FAERS Safety Report 7178355-7 (Version None)
Quarter: 2010Q4

REPORT INFORMATION
  Report Type: 
  Country: None (occurrence: None)
  Receive Date: 20101220
  Receipt Date: 20101211
  Transmission Date: 20110411
  Serious: Yes (Other)
  Sender: FDA-Public Use
  Company Number: IN-PFIZER INC-2010169882

PATIENT
  Age: 42 Year
  Sex: Male

DRUGS (2)
  1. ERAXIS [Suspect]
     Indication: FUNGAL INFECTION
     Dosage: 100 MG, 1X/DAY
     Route: 042
     Dates: start: 20101206, end: 20101207
  2. TETRACYCLINE [Concomitant]
     Route: 042

REACTIONS (2)
  - CONVULSION [None]
  - EMBOLISM ARTERIAL [None]
